FAERS Safety Report 13824675 (Version 1)
Quarter: 2017Q3

REPORT INFORMATION
  Report Type: Spontaneous
  Country: US (occurrence: US)
  Receive Date: 20170801
  Receipt Date: 20170801
  Transmission Date: 20171127
  Serious: Yes (Other)
  Sender: FDA-Public Use
  Company Number: None

PATIENT
  Age: 9 Year
  Sex: Female
  Weight: 48.6 kg

DRUGS (1)
  1. AZITHROMYCIN 250 MG TAB [Suspect]
     Active Substance: AZITHROMYCIN
     Indication: BRONCHIAL DISORDER
     Dosage: ?          QUANTITY:6 TABLET(S);?
     Route: 048
     Dates: start: 20170726, end: 20170730

REACTIONS (4)
  - Arthralgia [None]
  - Swelling [None]
  - Pain in extremity [None]
  - Abdominal pain [None]

NARRATIVE: CASE EVENT DATE: 20170731
